FAERS Safety Report 23048599 (Version 1)
Quarter: 2023Q4

REPORT INFORMATION
  Report Type: Spontaneous
  Country: US (occurrence: US)
  Receive Date: 20231010
  Receipt Date: 20231010
  Transmission Date: 20240109
  Serious: Yes (Other)
  Sender: FDA-Public Use
  Company Number: US-AVET LIFESCIENCES LTD-2023-AVET-000293

PATIENT
  Age: 59 Year
  Sex: Male

DRUGS (3)
  1. AMANTADINE HYDROCHLORIDE [Suspect]
     Active Substance: AMANTADINE HYDROCHLORIDE
     Indication: Dyskinesia
     Dosage: 100 MILLIGRAM, BID
  2. HYDROCHLOROTHIAZIDE [Concomitant]
     Active Substance: HYDROCHLOROTHIAZIDE
     Indication: Hypertension
     Dosage: 25 MILLIGRAM, QD
  3. LEVODOPA [Concomitant]
     Active Substance: LEVODOPA
     Dosage: 1200 MILLIGRAM, QD

REACTIONS (2)
  - Dysarthria [Recovered/Resolved]
  - Myoclonus [Recovered/Resolved]
